FAERS Safety Report 22115310 (Version 3)
Quarter: 2023Q1

REPORT INFORMATION
  Report Type: Spontaneous
  Country: US (occurrence: US)
  Receive Date: 20230320
  Receipt Date: 20230329
  Transmission Date: 20230418
  Serious: No
  Sender: FDA-Public Use
  Company Number: US-BAYER-2023A030591

PATIENT
  Age: 72 Year
  Sex: Female

DRUGS (4)
  1. CHILDREN ASTEPRO ALLERGY [Suspect]
     Active Substance: AZELASTINE HYDROCHLORIDE
     Indication: Hypersensitivity
     Dosage: 1 SPRAY IN EACH NOSETRILL
     Dates: start: 20230307, end: 20230307
  2. CHILDREN ASTEPRO ALLERGY [Suspect]
     Active Substance: AZELASTINE HYDROCHLORIDE
     Indication: Nasopharyngitis
  3. NASACORT [Concomitant]
     Active Substance: TRIAMCINOLONE ACETONIDE
     Dosage: UNK
  4. ALAVERT ALLERGY [Concomitant]
     Active Substance: LORATADINE
     Dosage: UNK

REACTIONS (1)
  - Sneezing [None]
